FAERS Safety Report 21321896 (Version 2)
Quarter: 2023Q2

REPORT INFORMATION
  Report Type: Spontaneous
  Country: US (occurrence: US)
  Receive Date: 20220912
  Receipt Date: 20230620
  Transmission Date: 20230721
  Serious: No
  Sender: FDA-Public Use
  Company Number: US-ALLERGAN-2219447US

PATIENT
  Age: 62 Year
  Sex: Male
  Weight: 79 kg

DRUGS (1)
  1. ANDRODERM [Suspect]
     Active Substance: TESTOSTERONE
     Indication: Thermal burn
     Dosage: ROUTE-SKIN
     Route: 061
     Dates: start: 20220317, end: 20220521

REACTIONS (2)
  - Off label use [Unknown]
  - Skin burning sensation [Recovered/Resolved]

NARRATIVE: CASE EVENT DATE: 20220317
